FAERS Safety Report 8361645-X (Version None)
Quarter: 2012Q2

REPORT INFORMATION
  Report Type: 
  Country: None (occurrence: None)
  Receive Date: 20120515
  Receipt Date: 20120430
  Transmission Date: 20120825
  Serious: Yes (Death)
  Sender: FDA-Public Use
  Company Number: TN-WATSON-2012-07809

PATIENT
  Age: 63 Year
  Sex: Female

DRUGS (1)
  1. FUROSEMIDE [Suspect]
     Indication: HYPERTENSION
     Dosage: 20 MG, DAILY
     Route: 065

REACTIONS (4)
  - CARDIAC ARREST [None]
  - PANCREATITIS ACUTE [None]
  - TOXICITY TO VARIOUS AGENTS [None]
  - PANCREATITIS RELAPSING [None]
